FAERS Safety Report 6900770-4 (Version None)
Quarter: 2010Q3

REPORT INFORMATION
  Report Type: 
  Country: None (occurrence: None)
  Receive Date: 20100803
  Receipt Date: 20100723
  Transmission Date: 20110219
  Serious: Yes (Hospitalization)
  Sender: FDA-Public Use
  Company Number: US-RB-010420-10

PATIENT
  Age: 29 Year
  Sex: Female

DRUGS (4)
  1. SUBOXONE [Suspect]
     Indication: DRUG DEPENDENCE
     Route: 060
     Dates: start: 20090901, end: 20100201
  2. SUBUTEX [Suspect]
     Indication: DRUG DEPENDENCE
     Route: 060
     Dates: start: 20100201, end: 20100718
  3. LEXAPRO [Concomitant]
     Indication: DEPRESSION
     Dosage: DOSING DETAILS UNKNOWN
     Route: 065
  4. SEROQUEL [Concomitant]
     Indication: INSOMNIA
     Dosage: DOSING DETAILS UNKNOWN
     Route: 065

REACTIONS (7)
  - ABDOMINAL PAIN [None]
  - DECREASED APPETITE [None]
  - DRUG EXPOSURE DURING PREGNANCY [None]
  - GALLBLADDER DISORDER [None]
  - GALLBLADDER PAIN [None]
  - HYPOGLYCAEMIA [None]
  - WEIGHT DECREASED [None]
